FAERS Safety Report 25674431 (Version 1)
Quarter: 2025Q3

REPORT INFORMATION
  Report Type: Report from Study
  Country: US (occurrence: US)
  Receive Date: 20250813
  Receipt Date: 20250813
  Transmission Date: 20251021
  Serious: Yes (Other)
  Sender: TAKEDA
  Company Number: US-TAKEDA-2025TUS038596

PATIENT
  Age: 60 Year
  Sex: Female

DRUGS (17)
  1. FRUQUINTINIB [Suspect]
     Active Substance: FRUQUINTINIB
     Indication: Rectal cancer
  2. FRUQUINTINIB [Suspect]
     Active Substance: FRUQUINTINIB
     Indication: Colon cancer
  3. ALEVE [Concomitant]
     Active Substance: NAPROXEN SODIUM
  4. CLARITIN [Concomitant]
     Active Substance: LORATADINE
  5. MAGNESIUM CITRATE [Concomitant]
     Active Substance: MAGNESIUM CITRATE
  6. DIETARY SUPPLEMENT\HERBALS\MILK THISTLE [Concomitant]
     Active Substance: MILK THISTLE
  7. VITAMIN D [Concomitant]
     Active Substance: VITAMIN D NOS
  8. Lansinoh [Concomitant]
  9. ALOE VERA LEAF [Concomitant]
     Active Substance: ALOE VERA LEAF
  10. Chlorophyll [Concomitant]
  11. Modified citrus pectin [Concomitant]
  12. FLONASE ALLERGY RELIEF [Concomitant]
     Active Substance: FLUTICASONE PROPIONATE
  13. GABAPENTIN [Concomitant]
     Active Substance: GABAPENTIN
  14. COLACE [Concomitant]
     Active Substance: DOCUSATE SODIUM
  15. ALOE VERA LEAF [Concomitant]
     Active Substance: ALOE VERA LEAF
  16. AMLODIPINE [Concomitant]
     Active Substance: AMLODIPINE BESYLATE
  17. MEDROL [Concomitant]
     Active Substance: METHYLPREDNISOLONE

REACTIONS (3)
  - Colon cancer [Not Recovered/Not Resolved]
  - Constipation [Not Recovered/Not Resolved]
  - Drug ineffective [Unknown]

NARRATIVE: CASE EVENT DATE: 20250411
